FAERS Safety Report 25575978 (Version 2)
Quarter: 2025Q3

REPORT INFORMATION
  Report Type: Report from Study
  Country: US (occurrence: US)
  Receive Date: 20250718
  Receipt Date: 20250724
  Transmission Date: 20251021
  Serious: Yes (Other)
  Sender: ACADIA PHARMACEUTICALS
  Company Number: US-ACADIA PHARMACEUTICALS INC.-ACA-2025-PIM-008347

PATIENT
  Age: 73 Year
  Sex: Male

DRUGS (6)
  1. NUPLAZID [Suspect]
     Active Substance: PIMAVANSERIN TARTRATE
     Indication: Parkinson^s disease psychosis
     Dosage: 34 MILLIGRAM, QD
     Route: 048
     Dates: start: 20250314, end: 20250707
  2. MEMANTINE [Concomitant]
     Active Substance: MEMANTINE
  3. ROSUVASTATIN [Concomitant]
     Active Substance: ROSUVASTATIN
  4. MODAFINIL [Concomitant]
     Active Substance: MODAFINIL
  5. SEROQUEL [Concomitant]
     Active Substance: QUETIAPINE FUMARATE
  6. GALANTAMINE [Concomitant]
     Active Substance: GALANTAMINE

REACTIONS (3)
  - Psychotic disorder [Unknown]
  - Confusional state [Unknown]
  - Drug ineffective [Unknown]

NARRATIVE: CASE EVENT DATE: 20250707
